FAERS Safety Report 13558034 (Version 8)
Quarter: 2018Q1

REPORT INFORMATION
  Report Type: Spontaneous
  Country: US (occurrence: US)
  Receive Date: 20170518
  Receipt Date: 20180327
  Transmission Date: 20180508
  Serious: Yes (Hospitalization, Other)
  Sender: FDA-Public Use
  Company Number: US-GLAXOSMITHKLINE-US2017069462

PATIENT
  Sex: Female

DRUGS (3)
  1. SORIATANE [Suspect]
     Active Substance: ACITRETIN
     Indication: SKIN DISORDER
  2. SORIATANE [Suspect]
     Active Substance: ACITRETIN
     Indication: PSORIASIS
     Dosage: 10 MG, UNK
  3. SORIATANE [Suspect]
     Active Substance: ACITRETIN
     Indication: KERATOSIS FOLLICULAR
     Dosage: 20 MG, 1D
     Route: 048
     Dates: start: 2007

REACTIONS (7)
  - Skin ulcer [Unknown]
  - Skin erosion [Unknown]
  - Skin infection [Recovering/Resolving]
  - Drug dose omission [Unknown]
  - Swelling [Unknown]
  - Seizure [Unknown]
  - Infection [Unknown]

NARRATIVE: CASE EVENT DATE: 2017
